FAERS Safety Report 4970324-8 (Version None)
Quarter: 2006Q2

REPORT INFORMATION
  Report Type: 
  Country: None (occurrence: None)
  Receive Date: 20060412
  Receipt Date: 20060210
  Transmission Date: 20061013
  Serious: Yes (Other)
  Sender: FDA-Public Use
  Company Number: PHBS2006JP02399

PATIENT
  Age: 72 Year
  Sex: Male

DRUGS (3)
  1. OPALMON [Concomitant]
     Dosage: 15-10 UG/D
     Route: 048
     Dates: start: 20020906
  2. JUVELA [Concomitant]
     Dosage: 150 MG/D
     Route: 048
     Dates: start: 20020906, end: 20041003
  3. LAMISIL [Suspect]
     Indication: NAIL TINEA
     Dosage: 125 MG/D
     Route: 048
     Dates: start: 20020531, end: 20021104

REACTIONS (10)
  - ARTHRALGIA [None]
  - BACK PAIN [None]
  - BLOOD IRON DECREASED [None]
  - DIFFICULTY IN WALKING [None]
  - DIZZINESS [None]
  - HAEMATOCRIT DECREASED [None]
  - HAEMOGLOBIN DECREASED [None]
  - IRON DEFICIENCY ANAEMIA [None]
  - MALAISE [None]
  - RED BLOOD CELL COUNT DECREASED [None]
